FAERS Safety Report 8939814 (Version 2)
Quarter: 2013Q4

REPORT INFORMATION
  Report Type: Spontaneous
  Country: GB (occurrence: GB)
  Receive Date: 20121203
  Receipt Date: 20131004
  Transmission Date: 20140711
  Serious: Yes (Other)
  Sender: FDA-Public Use
  Company Number: GB-BIOGENIDEC-2012BI056410

PATIENT
  Age: 52 Year
  Sex: Female

DRUGS (10)
  1. AVONEX [Suspect]
     Indication: MULTIPLE SCLEROSIS
     Route: 030
     Dates: start: 20101113
  2. AMANTADINE [Concomitant]
  3. AMLOPIDINE [Concomitant]
  4. BACLOFEN [Concomitant]
  5. IBUPROFEN [Concomitant]
  6. NYTOL [Concomitant]
  7. OMEPRAZOLE [Concomitant]
  8. PARACETAMOL [Concomitant]
  9. SIMVASTATIN [Concomitant]
  10. TOLTERODINE [Concomitant]

REACTIONS (1)
  - Atrial fibrillation [Not Recovered/Not Resolved]
